FAERS Safety Report 4944292-9 (Version None)
Quarter: 2006Q1

REPORT INFORMATION
  Report Type: 
  Country: None (occurrence: None)
  Receive Date: 20060315
  Receipt Date: 20060302
  Transmission Date: 20060701
  Serious: Yes (Hospitalization)
  Sender: FDA-Public Use
  Company Number: IE-GLAXOSMITHKLINE-B0415309A

PATIENT
  Age: 82 Year
  Sex: Male

DRUGS (6)
  1. AUGMENTIN '125' [Suspect]
     Dosage: 1.2G SINGLE DOSE
     Route: 042
     Dates: start: 20060215, end: 20060215
  2. PLAVIX [Concomitant]
  3. FRUSEMIDE [Concomitant]
  4. LIPITOR [Concomitant]
  5. DILTIAZEM HYDROCHLORIDE [Concomitant]
  6. COVERSYL [Concomitant]

REACTIONS (4)
  - CHEST PAIN [None]
  - COUGH [None]
  - DYSPNOEA [None]
  - RASH [None]
